FAERS Safety Report 7945905-X (Version None)
Quarter: 2011Q4

REPORT INFORMATION
  Report Type: 
  Country: None (occurrence: None)
  Receive Date: 20111129
  Receipt Date: 20111122
  Transmission Date: 20120403
  Serious: Yes (Other)
  Sender: FDA-Public Use
  Company Number: PHEH2011US008732

PATIENT
  Sex: Female
  Weight: 78.4 kg

DRUGS (7)
  1. RECLAST [Suspect]
     Indication: OSTEOPOROSIS
     Dosage: 5 MG, UNK (PER YEAR)
     Route: 042
     Dates: start: 20111027
  2. CALCIUM D [Concomitant]
     Dosage: 600 UKN, BID
  3. SAVELLA [Concomitant]
     Dosage: 50 MG, BID
  4. FLEXERIL [Concomitant]
     Dosage: 10 MG, UNK (4 PER DAY)
  5. CYCLOBENZAPRINE [Concomitant]
     Dosage: UNK UKN, UNK
  6. VITAMIN D [Concomitant]
     Dosage: 50000 UKN, QW
  7. SYNTHROID [Concomitant]
     Dosage: 200 MG, QD

REACTIONS (7)
  - INFLUENZA LIKE ILLNESS [None]
  - CHEST PAIN [None]
  - NECK PAIN [None]
  - PARAESTHESIA [None]
  - PAIN [None]
  - PAIN IN EXTREMITY [None]
  - HEADACHE [None]
